FAERS Safety Report 22388016 (Version 1)
Quarter: 2023Q2

REPORT INFORMATION
  Report Type: Spontaneous
  Country: US (occurrence: US)
  Receive Date: 20230531
  Receipt Date: 20230531
  Transmission Date: 20230722
  Serious: Yes (Hospitalization)
  Sender: FDA-Public Use
  Company Number: US-MYLANLABS-2023M1055224

PATIENT
  Age: 7 Decade
  Sex: Male

DRUGS (1)
  1. HEPARIN [Suspect]
     Active Substance: HEPARIN SODIUM
     Indication: Thrombosis prophylaxis
     Dosage: 5000 INTERNATIONAL UNIT, TID (RECEIVED THRICE A DAY FROM DAY 1 TO 23)
     Route: 058

REACTIONS (5)
  - Heparin-induced thrombocytopenia [Recovered/Resolved]
  - Immune thrombocytopenia [Recovered/Resolved]
  - Cerebral venous sinus thrombosis [Recovered/Resolved]
  - Pulmonary embolism [Recovered/Resolved]
  - Thrombophlebitis [Recovered/Resolved]
